FAERS Safety Report 4861533-7 (Version None)
Quarter: 2005Q4

REPORT INFORMATION
  Report Type: 
  Country: None (occurrence: None)
  Receive Date: 20051129
  Receipt Date: 20050909
  Transmission Date: 20060501
  Serious: Yes (Other)
  Sender: FDA-Public Use
  Company Number: WAES 0509USA01224

PATIENT
  Age: 59 Year
  Sex: Female
  Weight: 75.2971 kg

DRUGS (7)
  1. FOSAMAX [Suspect]
     Indication: OSTEOPOROSIS
     Dosage: 70MG/WKY/PO
     Route: 048
     Dates: start: 20050505, end: 20050825
  2. CLINORIL [Concomitant]
  3. FLEXERIL [Concomitant]
  4. MEVACOR [Concomitant]
  5. NEURONTIN [Concomitant]
  6. PROZAC [Concomitant]
  7. ULTRAM [Concomitant]

REACTIONS (1)
  - ABDOMINAL DISTENSION [None]
